FAERS Safety Report 9683750 (Version 1)
Quarter: 2013Q4

REPORT INFORMATION
  Report Type: Spontaneous
  Country: US (occurrence: US)
  Receive Date: 20131112
  Receipt Date: 20131112
  Transmission Date: 20140711
  Serious: Yes (Other)
  Sender: FDA-Public Use
  Company Number: US-BRISTOL-MYERS SQUIBB COMPANY-19412022

PATIENT
  Age: 78 Year
  Sex: Female

DRUGS (4)
  1. PRAVACHOL [Suspect]
     Indication: HYPERLIPIDAEMIA
  2. DENOSUMAB [Suspect]
     Indication: OSTEOPOROSIS
     Dates: start: 20100920, end: 20130411
  3. ACCURETIC [Concomitant]
  4. REQUIP [Concomitant]

REACTIONS (6)
  - Staphylococcal infection [Recovered/Resolved]
  - Rheumatoid arthritis [Unknown]
  - Feeling abnormal [Unknown]
  - Pain [Unknown]
  - Arthralgia [Not Recovered/Not Resolved]
  - Myalgia [Not Recovered/Not Resolved]
